FAERS Safety Report 17152156 (Version 4)
Quarter: 2021Q1

REPORT INFORMATION
  Report Type: Spontaneous
  Country: FR (occurrence: FR)
  Receive Date: 20191213
  Receipt Date: 20210329
  Transmission Date: 20210419
  Serious: Yes (Death, Hospitalization, Other)
  Sender: FDA-Public Use
  Company Number: NVSC2019FR064357

PATIENT
  Age: 60 Year
  Sex: Female

DRUGS (14)
  1. DOXORUBICINE [Suspect]
     Active Substance: DOXORUBICIN
     Indication: PLASMA CELL MYELOMA
     Dosage: UNK (TABLET FOR ORAL SUSPENSION)
     Route: 065
     Dates: start: 20190418, end: 20190513
  2. CARFILZOMIB [Suspect]
     Active Substance: CARFILZOMIB
     Indication: PLASMA CELL MYELOMA
     Dosage: UNK
     Route: 065
     Dates: start: 20190116, end: 20190409
  3. CARFILZOMIB [Suspect]
     Active Substance: CARFILZOMIB
     Dosage: UNK
     Route: 065
     Dates: start: 20190517, end: 20190517
  4. VELCADE [Suspect]
     Active Substance: BORTEZOMIB
     Indication: PLASMA CELL MYELOMA
     Dosage: UNK
     Route: 065
     Dates: start: 20190418, end: 20190513
  5. DARZALEX [Suspect]
     Active Substance: DARATUMUMAB
     Dosage: UNK
     Route: 065
     Dates: end: 20190517
  6. POMALIDOMIDE [Suspect]
     Active Substance: POMALIDOMIDE
     Indication: PLASMA CELL MYELOMA
     Dosage: 4 MG
     Route: 048
     Dates: start: 20181121, end: 20181212
  7. DEXAMETHASONE. [Suspect]
     Active Substance: DEXAMETHASONE
     Dosage: UNK
     Route: 065
     Dates: start: 20190418, end: 20190513
  8. THALIDOMIDE [Suspect]
     Active Substance: THALIDOMIDE
     Indication: PLASMA CELL MYELOMA
     Dosage: UNK
     Route: 065
     Dates: start: 20190418, end: 20190513
  9. DARZALEX [Suspect]
     Active Substance: DARATUMUMAB
     Indication: PLASMA CELL MYELOMA
     Dosage: UNK
     Route: 065
     Dates: start: 20190116, end: 20190409
  10. INNOHEP [Concomitant]
     Active Substance: TINZAPARIN SODIUM
     Indication: PROPHYLAXIS
     Dosage: UNK
     Route: 058
     Dates: start: 20180813
  11. DEXAMETHASONE. [Suspect]
     Active Substance: DEXAMETHASONE
     Indication: PLASMA CELL MYELOMA
     Dosage: UNK
     Route: 065
     Dates: start: 20190116, end: 20190409
  12. REVLIMID [Suspect]
     Active Substance: LENALIDOMIDE
     Indication: PLASMA CELL MYELOMA
     Dosage: 25 MG
     Route: 065
     Dates: end: 20181221
  13. CYCLOPHOSPHAMIDE. [Suspect]
     Active Substance: CYCLOPHOSPHAMIDE
     Indication: PLASMA CELL MYELOMA
     Dosage: 300 MG
     Route: 048
     Dates: start: 20181121, end: 20181212
  14. IXAZOMIB [Suspect]
     Active Substance: IXAZOMIB
     Indication: PLASMA CELL MYELOMA
     Dosage: 4 MILLIGRAM
     Route: 065
     Dates: start: 20181221, end: 20181221

REACTIONS (23)
  - Hepatic cirrhosis [Unknown]
  - General physical health deterioration [Unknown]
  - Jaundice [Recovering/Resolving]
  - Decubitus ulcer [Unknown]
  - Malnutrition [Unknown]
  - Thrombocytopenia [Recovering/Resolving]
  - Diarrhoea [Unknown]
  - Joint ankylosis [Unknown]
  - Pain [Unknown]
  - Disease progression [Unknown]
  - Sleep disorder [Unknown]
  - Cholestasis [Unknown]
  - Anaemia [Recovering/Resolving]
  - Dyspepsia [Unknown]
  - Epistaxis [Recovering/Resolving]
  - Body dysmorphic disorder [Unknown]
  - Constipation [Unknown]
  - Haemorrhoidal haemorrhage [Recovered/Resolved]
  - Death [Fatal]
  - Ascites [Unknown]
  - Hepatocellular injury [Unknown]
  - Loss of personal independence in daily activities [Unknown]
  - Pruritus [Recovering/Resolving]

NARRATIVE: CASE EVENT DATE: 20190506
